FAERS Safety Report 20176502 (Version 1)
Quarter: 2021Q4

REPORT INFORMATION
  Report Type: Spontaneous
  Country: US (occurrence: None)
  Receive Date: 20211210
  Receipt Date: 20211210
  Transmission Date: 20220303
  Serious: No
  Sender: FDA-Public Use
  Company Number: None

PATIENT
  Age: 54 Year
  Sex: Female
  Weight: 72 kg

DRUGS (4)
  1. PREDNISONE [Suspect]
     Active Substance: PREDNISONE
     Indication: Limb injury
     Dosage: OTHER FREQUENCY : TAPERED FOR 6 DAYS;?
     Route: 048
     Dates: start: 20211208
  2. MODERNA COVID-19 VACCINE [Suspect]
     Active Substance: ELASOMERAN
  3. ROSUVASTATIN [Concomitant]
     Active Substance: ROSUVASTATIN
  4. VOLTAREN [Concomitant]
     Active Substance: DICLOFENAC SODIUM

REACTIONS (2)
  - Swelling face [None]
  - Erythema [None]

NARRATIVE: CASE EVENT DATE: 20211210
